FAERS Safety Report 19509308 (Version 1)
Quarter: 2021Q3

REPORT INFORMATION
  Report Type: Spontaneous
  Country: US (occurrence: US)
  Receive Date: 20210709
  Receipt Date: 20210709
  Transmission Date: 20211014
  Serious: No
  Sender: FDA-Public Use
  Company Number: US-PRINSTON PHARMACEUTICAL INC.-2021PRN00045

PATIENT
  Age: 57 Year
  Sex: Female
  Weight: 61.22 kg

DRUGS (4)
  1. CLONAZEPAM. [Suspect]
     Active Substance: CLONAZEPAM
     Indication: MULTIPLE SCLEROSIS
     Dosage: UNK, 1X/DAY
     Route: 048
     Dates: start: 20201229, end: 20210111
  2. FISH OIL [Concomitant]
     Active Substance: FISH OIL
  3. DEPAKOTE [Suspect]
     Active Substance: DIVALPROEX SODIUM
     Dosage: UNK
  4. UNSPECIFIED VITAMIN [Concomitant]
     Active Substance: VITAMINS

REACTIONS (6)
  - Chest pain [Recovering/Resolving]
  - Off label use [Recovered/Resolved]
  - Presyncope [Recovered/Resolved]
  - Malaise [Recovered/Resolved]
  - Vision blurred [Recovered/Resolved]
  - Headache [Recovered/Resolved]

NARRATIVE: CASE EVENT DATE: 20201229
